FAERS Safety Report 21878866 (Version 4)
Quarter: 2024Q2

REPORT INFORMATION
  Report Type: Spontaneous
  Country: US (occurrence: US)
  Receive Date: 20230118
  Receipt Date: 20240509
  Transmission Date: 20240716
  Serious: No
  Sender: FDA-Public Use
  Company Number: US-PFIZER INC-PV202300007771

PATIENT
  Age: 39 Year
  Sex: Female

DRUGS (1)
  1. IBRANCE [Suspect]
     Active Substance: PALBOCICLIB
     Dosage: 100 MG, CYCLIC
     Dates: start: 20221012

REACTIONS (6)
  - Fatigue [Unknown]
  - Gingival pain [Unknown]
  - Palmar-plantar erythrodysaesthesia syndrome [Unknown]
  - Palmar erythema [Unknown]
  - Pain in extremity [Unknown]
  - Pruritus [Unknown]
